FAERS Safety Report 17765421 (Version 1)
Quarter: 2020Q2

REPORT INFORMATION
  Report Type: Spontaneous
  Country: US (occurrence: US)
  Receive Date: 20200508
  Receipt Date: 20200508
  Transmission Date: 20200714
  Serious: Yes (Disabling)
  Sender: FDA-Public Use
  Company Number: None

PATIENT
  Age: 35 Year
  Sex: Female
  Weight: 56.25 kg

DRUGS (5)
  1. HEARING AID [Concomitant]
  2. ESSENTIAL OILS. [Concomitant]
     Active Substance: ESSENTIAL OILS
  3. BOTOX [Suspect]
     Active Substance: ONABOTULINUMTOXINA
     Indication: MIGRAINE
     Dates: start: 20191011, end: 20191011
  4. CEFALY DEVICE [Concomitant]
  5. ESTROGEN PROGESTERONE TESTOSTERONE PELLET [Concomitant]
     Active Substance: ESTROGENS\PROGESTERONE\TESTOSTERONE

REACTIONS (4)
  - Pain [None]
  - Dizziness [None]
  - Neck pain [None]
  - Skin burning sensation [None]

NARRATIVE: CASE EVENT DATE: 20191011
